FAERS Safety Report 9341167 (Version 1)
Quarter: 2013Q2

REPORT INFORMATION
  Report Type: Spontaneous
  Country: CA (occurrence: CA)
  Receive Date: 20130611
  Receipt Date: 20130611
  Transmission Date: 20140414
  Serious: Yes (Other)
  Sender: FDA-Public Use
  Company Number: CA-ROCHE-1234360

PATIENT
  Age: 50 Year
  Sex: Female

DRUGS (8)
  1. XELODA [Suspect]
     Indication: PRODUCT USED FOR UNKNOWN INDICATION
     Dosage: FREQUENCY: CYCLICAL
     Route: 065
  2. TYKERB [Suspect]
     Indication: PRODUCT USED FOR UNKNOWN INDICATION
     Dosage: FREQUENCY; CYCLICAL
     Route: 048
  3. RANITIDINE [Concomitant]
     Route: 065
  4. IMOVANE [Concomitant]
     Route: 065
  5. LIVOSTIN EYE DROPS [Concomitant]
     Route: 065
  6. SIMETHICONE [Concomitant]
     Route: 065
  7. VITAMIN B6 [Concomitant]
     Route: 065
  8. SYNTHROID [Concomitant]
     Route: 065

REACTIONS (8)
  - Asthenia [Not Recovered/Not Resolved]
  - Breast cancer metastatic [Not Recovered/Not Resolved]
  - Dyspepsia [Not Recovered/Not Resolved]
  - Fatigue [Not Recovered/Not Resolved]
  - Malignant neoplasm progression [Not Recovered/Not Resolved]
  - Metastases to central nervous system [Not Recovered/Not Resolved]
  - Nausea [Not Recovered/Not Resolved]
  - Pain [Not Recovered/Not Resolved]
